FAERS Safety Report 22206588 (Version 1)
Quarter: 2023Q2

REPORT INFORMATION
  Report Type: Spontaneous
  Country: JP (occurrence: JP)
  Receive Date: 20230413
  Receipt Date: 20230413
  Transmission Date: 20230722
  Serious: Yes (Other)
  Sender: FDA-Public Use
  Company Number: JP-SUN PHARMACEUTICAL INDUSTRIES LTD-2023RR-384419

PATIENT
  Sex: Female
  Weight: 1.947 kg

DRUGS (2)
  1. RITODRINE [Suspect]
     Active Substance: RITODRINE
     Indication: Uterine contractions during pregnancy
     Dosage: UNK
     Route: 065
  2. ACETAMINOPHEN [Suspect]
     Active Substance: ACETAMINOPHEN
     Indication: Migraine
     Dosage: UNK
     Route: 065

REACTIONS (4)
  - Foetal exposure during pregnancy [Unknown]
  - Low birth weight baby [Unknown]
  - Apgar score low [Unknown]
  - Premature baby [Unknown]
